FAERS Safety Report 10265211 (Version 1)
Quarter: 2014Q2

REPORT INFORMATION
  Report Type: Spontaneous
  Country: CH (occurrence: CH)
  Receive Date: 20140627
  Receipt Date: 20140627
  Transmission Date: 20141212
  Serious: Yes (Death, Hospitalization, Other)
  Sender: FDA-Public Use
  Company Number: CH-ACTAVIS-2014-13399

PATIENT
  Age: 41 Year
  Sex: Male

DRUGS (4)
  1. COLCHICINE (UNKNOWN) [Suspect]
     Indication: SUICIDE ATTEMPT
     Dosage: 60 MG, SINGLE
     Route: 048
  2. PARACETAMOL  (UNKNOWN) [Suspect]
     Indication: SUICIDE ATTEMPT
     Dosage: 5 G, SINGLE
     Route: 048
  3. ALLOPURINOL (UNKNOWN) [Suspect]
     Indication: SUICIDE ATTEMPT
     Dosage: 1000 MG, SINGLE
     Route: 048
  4. ACEMETACIN [Suspect]
     Indication: SUICIDE ATTEMPT
     Dosage: 180 MG, SINGLE
     Route: 065

REACTIONS (15)
  - Multi-organ failure [Fatal]
  - Hepatitis toxic [Unknown]
  - Pancreatitis [Unknown]
  - Pancytopenia [Unknown]
  - Coagulopathy [Unknown]
  - Gastrointestinal haemorrhage [Unknown]
  - Metabolic acidosis [Unknown]
  - Hypoglycaemia [Unknown]
  - Diarrhoea [Unknown]
  - Abdominal pain [Unknown]
  - Headache [Unknown]
  - Vomiting [Unknown]
  - Completed suicide [Fatal]
  - Intentional overdose [Fatal]
  - Alcohol interaction [Unknown]
